FAERS Safety Report 8839586 (Version 1)
Quarter: 2012Q4

REPORT INFORMATION
  Report Type: Spontaneous
  Country: US (occurrence: None)
  Receive Date: 20121011
  Receipt Date: 20121011
  Transmission Date: 20130627
  Serious: Yes (Hospitalization)
  Sender: FDA-Public Use
  Company Number: None

PATIENT
  Age: 50 Year
  Sex: Female
  Weight: 55.34 kg

DRUGS (1)
  1. LIALDA [Suspect]
     Indication: COLITIS MICROSCOPIC
     Dosage: 2 TABLETS ONCE DAILY PO
     Route: 048
     Dates: start: 20120824, end: 20120907

REACTIONS (4)
  - Chest pain [None]
  - Back pain [None]
  - Oropharyngeal pain [None]
  - Pain in jaw [None]
